FAERS Safety Report 10193007 (Version 3)
Quarter: 2014Q2

REPORT INFORMATION
  Report Type: Spontaneous
  Country: AR (occurrence: AR)
  Receive Date: 20140524
  Receipt Date: 20140530
  Transmission Date: 20141212
  Serious: Yes (Other)
  Sender: FDA-Public Use
  Company Number: AR-AMGEN INC.-ARGSP2014032891

PATIENT
  Age: 55 Year
  Sex: Female

DRUGS (5)
  1. ENBREL [Suspect]
     Indication: RHEUMATOID ARTHRITIS
     Dosage: 50 MG, WEEKLY
     Route: 065
     Dates: start: 20080410, end: 20140318
  2. PREDNISOLONE [Concomitant]
     Dosage: 5 MG, 1X/DAY
  3. NAPROXEN [Concomitant]
     Dosage: UNK UNK, BID
  4. AZATHIOPRINE [Concomitant]
     Dosage: UNK UNK, QD
  5. RAQUIFEROL [Concomitant]
     Indication: ANAEMIA
     Dosage: 7 GTT (DROP), DAILY

REACTIONS (4)
  - Knee deformity [Recovered/Resolved]
  - Haemorrhoids [Not Recovered/Not Resolved]
  - Gait disturbance [Not Recovered/Not Resolved]
  - Condition aggravated [Not Recovered/Not Resolved]
